FAERS Safety Report 5389410-6 (Version None)
Quarter: 2007Q3

REPORT INFORMATION
  Report Type: 
  Country: None (occurrence: None)
  Receive Date: 20070717
  Receipt Date: 20070711
  Transmission Date: 20080115
  Serious: Yes (Death)
  Sender: FDA-Public Use
  Company Number: JP-ASTRAZENECA-2007AP04205

PATIENT
  Age: 77 Year
  Sex: Male

DRUGS (2)
  1. OMEPRAL [Suspect]
     Route: 048
     Dates: start: 20070428, end: 20070601
  2. TICLOPIDINE HCL [Suspect]
     Route: 048
     Dates: start: 20070418, end: 20070530

REACTIONS (2)
  - LIVER DISORDER [None]
  - TOXIC EPIDERMAL NECROLYSIS [None]
